FAERS Safety Report 9580802 (Version 3)
Quarter: 2013Q4

REPORT INFORMATION
  Report Type: Spontaneous
  Country: US (occurrence: US)
  Receive Date: 20131002
  Receipt Date: 20131031
  Transmission Date: 20140711
  Serious: Yes (Other)
  Sender: FDA-Public Use
  Company Number: US-PFIZER INC-2013278624

PATIENT
  Sex: Male

DRUGS (5)
  1. LYRICA [Suspect]
     Indication: BACK PAIN
     Dosage: UNK
     Dates: start: 2007
  2. LYRICA [Suspect]
     Indication: NECK PAIN
  3. TRAMADOL HYDROCHLORIDE [Suspect]
     Indication: BACK PAIN
     Dosage: UNK
     Dates: start: 2007
  4. TRAMADOL HYDROCHLORIDE [Suspect]
     Indication: NECK PAIN
  5. AMBIEN [Suspect]
     Indication: SLEEP DISORDER
     Dosage: UNK

REACTIONS (28)
  - Testicular haemorrhage [Unknown]
  - Coagulopathy [Unknown]
  - Weight increased [Unknown]
  - Insomnia [Unknown]
  - Blister [Unknown]
  - Contusion [Unknown]
  - Hyperhidrosis [Unknown]
  - Night sweats [Unknown]
  - Dizziness [Unknown]
  - Balance disorder [Unknown]
  - Somnolence [Unknown]
  - Fatigue [Unknown]
  - Asthenia [Unknown]
  - Erectile dysfunction [Unknown]
  - Middle insomnia [Unknown]
  - Headache [Unknown]
  - Depression [Unknown]
  - Drug ineffective [Unknown]
  - Tinnitus [Unknown]
  - Hypopnoea [Unknown]
  - Local swelling [Unknown]
  - Paraesthesia [Unknown]
  - Hypoaesthesia [Unknown]
  - Sleep apnoea syndrome [Unknown]
  - Nocturia [Unknown]
  - Skin lesion [Unknown]
  - Gait disturbance [Unknown]
  - Sensory loss [Unknown]
